FAERS Safety Report 10045048 (Version 1)
Quarter: 2014Q1

REPORT INFORMATION
  Report Type: Spontaneous
  Country: TR (occurrence: TR)
  Receive Date: 20140328
  Receipt Date: 20140328
  Transmission Date: 20141002
  Serious: Yes (Other)
  Sender: FDA-Public Use
  Company Number: PHHY2014TR033741

PATIENT
  Age: 35 Year
  Sex: Male

DRUGS (2)
  1. PRAMIPEXOLE [Suspect]
     Dosage: 4 MG/DAY
  2. PRAMIPEXOLE [Suspect]
     Dosage: 12 MG/DAY

REACTIONS (11)
  - Psychotic disorder [Unknown]
  - Mania [Unknown]
  - Hypomania [Unknown]
  - Obsessive-compulsive disorder [Unknown]
  - Jealous delusion [Unknown]
  - Pathological gambling [Unknown]
  - Logorrhoea [Unknown]
  - Psychomotor hyperactivity [Unknown]
  - Pressure of speech [Unknown]
  - Insomnia [Unknown]
  - Impulse-control disorder [Unknown]
